FAERS Safety Report 9109732 (Version 1)
Quarter: 2013Q1

REPORT INFORMATION
  Report Type: Spontaneous
  Country: US (occurrence: US)
  Receive Date: 20130222
  Receipt Date: 20130222
  Transmission Date: 20140127
  Serious: No
  Sender: FDA-Public Use
  Company Number: US-PFIZER INC-2013066633

PATIENT
  Age: 57 Year
  Sex: Female
  Weight: 97.51 kg

DRUGS (3)
  1. LYRICA [Suspect]
     Indication: FIBROMYALGIA
     Dosage: 150MG, 4X/DAY
     Route: 048
     Dates: start: 201108, end: 201301
  2. CLONIDINE [Concomitant]
     Indication: HYPERTENSION
     Dosage: 0.3 MG, 2X/DAY
  3. IRON [Concomitant]
     Indication: IRON DEFICIENCY
     Dosage: UNK

REACTIONS (1)
  - Pain [Unknown]
